FAERS Safety Report 24407839 (Version 1)
Quarter: 2024Q4

REPORT INFORMATION
  Report Type: Spontaneous
  Country: US (occurrence: US)
  Receive Date: 20241007
  Receipt Date: 20241007
  Transmission Date: 20250114
  Serious: Yes (Life-Threatening, Hospitalization)
  Sender: MYLAN
  Company Number: US-MYLANLABS-2024M1088497

PATIENT
  Age: 64 Year
  Sex: Male

DRUGS (2)
  1. PREDNISONE [Suspect]
     Active Substance: PREDNISONE
     Indication: Autoimmune haemolytic anaemia
     Dosage: 80 MILLIGRAM
     Route: 065
  2. Immunoglobulin [Concomitant]
     Indication: Autoimmune haemolytic anaemia
     Dosage: UNK
     Route: 042

REACTIONS (6)
  - Disseminated cryptococcosis [Recovering/Resolving]
  - Atrial fibrillation [Recovering/Resolving]
  - Meningitis cryptococcal [Recovering/Resolving]
  - Fungal peritonitis [Recovering/Resolving]
  - Fungal sepsis [Recovering/Resolving]
  - Septic shock [Recovering/Resolving]
